FAERS Safety Report 6712958-6 (Version None)
Quarter: 2010Q2

REPORT INFORMATION
  Report Type: 
  Country: None (occurrence: None)
  Receive Date: 20100505
  Receipt Date: 20100505
  Transmission Date: 20101027
  Serious: Yes (Other)
  Sender: FDA-Public Use
  Company Number: None

PATIENT
  Age: 2 Year
  Sex: Male
  Weight: 13.6079 kg

DRUGS (3)
  1. CHILDREN'S MOTRIN [Suspect]
     Indication: PYREXIA
     Dosage: 5 ML EVERY 6 HRS PRN PO
     Route: 048
     Dates: start: 20100314, end: 20100316
  2. MOTRIN [Concomitant]
  3. OMNICEF [Concomitant]

REACTIONS (3)
  - ARTHROPOD BITE [None]
  - PRODUCT QUALITY ISSUE [None]
  - SKIN DISORDER [None]
